FAERS Safety Report 7729383-1 (Version None)
Quarter: 2011Q3

REPORT INFORMATION
  Report Type: 
  Country: None (occurrence: None)
  Receive Date: 20110906
  Receipt Date: 20110822
  Transmission Date: 20111222
  Serious: Yes (Other)
  Sender: FDA-Public Use
  Company Number: US-JNJFOC-20110900519

PATIENT
  Sex: Female
  Weight: 65.32 kg

DRUGS (2)
  1. RISPERIDONE [Concomitant]
     Indication: DEPRESSION
     Route: 048
     Dates: start: 20080101
  2. TOPIRAMATE [Suspect]
     Indication: DEPRESSION
     Route: 048
     Dates: start: 20110701

REACTIONS (1)
  - INTRAOCULAR PRESSURE INCREASED [None]
